FAERS Safety Report 8013788-8 (Version None)
Quarter: 2011Q4

REPORT INFORMATION
  Report Type: 
  Country: None (occurrence: None)
  Receive Date: 20111229
  Receipt Date: 20111222
  Transmission Date: 20120403
  Serious: Yes (Other)
  Sender: FDA-Public Use
  Company Number: JP-PFIZER INC-2011310959

PATIENT
  Age: 42 Year
  Sex: Male

DRUGS (1)
  1. SULFASALAZINE [Suspect]
     Dosage: 500 MG, DAILY
     Dates: start: 20090601, end: 20090701

REACTIONS (2)
  - ERYTHEMA MULTIFORME [None]
  - LIVER DISORDER [None]
